FAERS Safety Report 22953615 (Version 2)
Quarter: 2023Q4

REPORT INFORMATION
  Report Type: Spontaneous
  Country: US (occurrence: US)
  Receive Date: 20230918
  Receipt Date: 20231121
  Transmission Date: 20240109
  Serious: Yes (Other)
  Sender: FDA-Public Use
  Company Number: US-INCYTE CORPORATION-2023IN009416

PATIENT

DRUGS (10)
  1. JAKAFI [Suspect]
     Active Substance: RUXOLITINIB
     Indication: Polycythaemia vera
     Dosage: 20 MILLIGRAM, BID
     Route: 048
     Dates: start: 20170912
  2. ALLOPURINOL [Concomitant]
     Active Substance: ALLOPURINOL
     Indication: Product used for unknown indication
     Dosage: 100 MILLIGRAM
     Route: 065
  3. AMOXICILLIN [Concomitant]
     Active Substance: AMOXICILLIN
     Indication: Product used for unknown indication
     Dosage: 500 MILLIGRAM
     Route: 065
  4. ARGININE [Concomitant]
     Active Substance: ARGININE
     Indication: Product used for unknown indication
     Dosage: 500 MILLIGRAM
     Route: 065
  5. ASPIRIN [Concomitant]
     Active Substance: ASPIRIN
     Indication: Product used for unknown indication
     Dosage: 81 MILLIGRAM
     Route: 065
  6. CITRULLINE [Concomitant]
     Active Substance: CITRULLINE
     Indication: Product used for unknown indication
     Dosage: 1000 UNK
     Route: 065
  7. DILTIAZEM [Concomitant]
     Active Substance: DILTIAZEM
     Indication: Product used for unknown indication
     Dosage: 120 MILLIGRAM
     Route: 065
  8. HYDROXYUREA [Concomitant]
     Active Substance: HYDROXYUREA
     Indication: Product used for unknown indication
     Dosage: 500 MILLIGRAM
     Route: 065
  9. IRON [Concomitant]
     Active Substance: IRON
     Indication: Product used for unknown indication
     Dosage: 45 MILLIGRAM
     Route: 065
  10. CYANOCOBALAMIN\FOLIC ACID [Concomitant]
     Active Substance: CYANOCOBALAMIN\FOLIC ACID
     Indication: Product used for unknown indication
     Route: 065

REACTIONS (6)
  - Myelofibrosis [Unknown]
  - Thyroid hormones decreased [Unknown]
  - Blood testosterone decreased [Unknown]
  - Fatigue [Unknown]
  - Asthenia [Unknown]
  - Full blood count decreased [Unknown]
